FAERS Safety Report 25373866 (Version 2)
Quarter: 2025Q2

REPORT INFORMATION
  Report Type: Spontaneous
  Country: KR (occurrence: KR)
  Receive Date: 20250529
  Receipt Date: 20250605
  Transmission Date: 20250717
  Serious: No
  Sender: PFIZER
  Company Number: KR-PFIZER INC-202500110531

PATIENT

DRUGS (1)
  1. PAXLOVID [Suspect]
     Active Substance: NIRMATRELVIR\RITONAVIR
     Indication: COVID-19 treatment
     Route: 048
     Dates: start: 20250528, end: 20250528

REACTIONS (1)
  - Intercepted product dispensing error [Unknown]

NARRATIVE: CASE EVENT DATE: 20250528
